FAERS Safety Report 6701783-8 (Version None)
Quarter: 2010Q2

REPORT INFORMATION
  Report Type: 
  Country: None (occurrence: None)
  Receive Date: 20100427
  Receipt Date: 20100415
  Transmission Date: 20101027
  Serious: Yes (Hospitalization)
  Sender: FDA-Public Use
  Company Number: 2010AL002365

PATIENT
  Age: 84 Year
  Sex: Female

DRUGS (11)
  1. RAMIPRIL [Suspect]
     Indication: HYPERTENSION
     Dosage: 10 MG;QD
     Dates: start: 20081101
  2. ACETYLSALICYLIC ACID [Concomitant]
  3. GLYCERYL TRINITRATE [Concomitant]
  4. CANDESARTAN [Concomitant]
  5. AMLODIPINE [Concomitant]
  6. PANTOZOL [Concomitant]
  7. MIRTAZAPINE [Concomitant]
  8. PROCHLORPERAZINE [Concomitant]
  9. PALLADONE [Concomitant]
  10. LACTULOSE [Concomitant]
  11. INSULIN [Concomitant]

REACTIONS (5)
  - ANAPHYLACTIC REACTION [None]
  - BLOOD PRESSURE SYSTOLIC INCREASED [None]
  - DILATATION VENTRICULAR [None]
  - PLEURAL EFFUSION [None]
  - PULMONARY HYPERTENSION [None]
